FAERS Safety Report 7665399-1 (Version None)
Quarter: 2011Q3

REPORT INFORMATION
  Report Type: 
  Country: None (occurrence: None)
  Receive Date: 20110806
  Receipt Date: 20110614
  Transmission Date: 20111222
  Serious: No
  Sender: FDA-Public Use
  Company Number: US-ABBOTT-11P-163-0732740-00

PATIENT
  Sex: Female
  Weight: 70.37 kg

DRUGS (5)
  1. LEVOTHYROXINE SODIUM [Concomitant]
     Indication: HYPOTHYROIDISM
  2. NIASPAN [Suspect]
     Indication: ARTERIOSCLEROSIS
     Route: 048
     Dates: start: 20110614, end: 20110614
  3. ASPIRIN [Concomitant]
     Indication: DRUG THERAPY
     Dosage: 30 MIN PRIOR TO NIASPAN
  4. PRAVASTATIN [Concomitant]
     Indication: BLOOD CHOLESTEROL INCREASED
  5. NIASPAN [Suspect]
     Indication: BLOOD CHOLESTEROL INCREASED

REACTIONS (3)
  - GENERALISED ERYTHEMA [None]
  - INCORRECT DOSE ADMINISTERED [None]
  - PRURITUS [None]
